FAERS Safety Report 24937767 (Version 2)
Quarter: 2025Q1

REPORT INFORMATION
  Report Type: Spontaneous
  Country: DE (occurrence: DE)
  Receive Date: 20250206
  Receipt Date: 20250305
  Transmission Date: 20250408
  Serious: Yes (Other)
  Sender: BAUSCH AND LOMB
  Company Number: DE-BRISTOL-MYERS SQUIBB COMPANY-2025-010148

PATIENT
  Age: 67 Year
  Sex: Male

DRUGS (4)
  1. DEXAMETHASONE [Suspect]
     Active Substance: DEXAMETHASONE
     Indication: Plasma cell myeloma
     Dosage: D1, 7, 14, 21 IN TOTAL 2 CYCLES A 28 DAYS
     Route: 042
     Dates: start: 20240923, end: 20241128
  2. POMALIDOMIDE [Suspect]
     Active Substance: POMALIDOMIDE
     Indication: Plasma cell myeloma
     Route: 065
     Dates: start: 20240923, end: 20241128
  3. ELOTUZUMAB [Suspect]
     Active Substance: ELOTUZUMAB
     Indication: Plasma cell myeloma
     Route: 065
     Dates: start: 20240923, end: 20241128
  4. DEXAMETHASONE [Suspect]
     Active Substance: DEXAMETHASONE
     Indication: Plasma cell myeloma
     Dosage: D1, 7, 14, 21 TOTAL 2 CYCLES A 28 DAYS
     Route: 048
     Dates: start: 20240923

REACTIONS (3)
  - Neutropenia [Recovered/Resolved]
  - Thrombocytopenia [Recovering/Resolving]
  - COVID-19 [Unknown]

NARRATIVE: CASE EVENT DATE: 20240930
